FAERS Safety Report 4407828-2 (Version None)
Quarter: 2004Q3

REPORT INFORMATION
  Report Type: 
  Country: None (occurrence: None)
  Receive Date: 20040721
  Receipt Date: 20040712
  Transmission Date: 20050211
  Serious: Yes (Hospitalization)
  Sender: FDA-Public Use
  Company Number: K200401026

PATIENT
  Age: 80 Year
  Sex: Female

DRUGS (8)
  1. ALTACE [Suspect]
     Dosage: 5 MG, QD, ORAL
     Route: 048
  2. SPIRONOLACTONE [Suspect]
     Dosage: 50 MG, QD, ORAL
     Route: 048
  3. INSULIN HUMAN (INSULIN HUMAN) [Concomitant]
  4. ALLOPURINOL [Concomitant]
  5. NORVASC [Concomitant]
  6. PRAVASTATIN SODIUM [Concomitant]
  7. AMARYL [Concomitant]
  8. DIGIMERCK MINOR (DIGITOXIN) [Concomitant]

REACTIONS (11)
  - ANOREXIA [None]
  - BLOOD CREATININE INCREASED [None]
  - BLOOD UREA INCREASED [None]
  - CATHETER RELATED INFECTION [None]
  - CHILLS [None]
  - CIRCULATORY COLLAPSE [None]
  - DIZZINESS [None]
  - HYPERKALAEMIA [None]
  - NEPHROGENIC ANAEMIA [None]
  - OEDEMA PERIPHERAL [None]
  - PLATELET COUNT DECREASED [None]
